FAERS Safety Report 8490852-0 (Version None)
Quarter: 2012Q3

REPORT INFORMATION
  Report Type: 
  Country: None (occurrence: None)
  Receive Date: 20120706
  Receipt Date: 20120629
  Transmission Date: 20120928
  Serious: No
  Sender: FDA-Public Use
  Company Number: US-BIOGENIDEC-2012BI023381

PATIENT
  Age: 31 Year
  Sex: Female

DRUGS (1)
  1. AVONEX [Suspect]
     Indication: MULTIPLE SCLEROSIS
     Route: 030
     Dates: start: 20091009

REACTIONS (4)
  - GENERAL SYMPTOM [None]
  - SEASONAL ALLERGY [None]
  - BRONCHITIS [None]
  - UPPER RESPIRATORY TRACT CONGESTION [None]
